FAERS Safety Report 10704397 (Version 2)
Quarter: 2015Q1

REPORT INFORMATION
  Report Type: Spontaneous
  Country: US (occurrence: US)
  Receive Date: 20150112
  Receipt Date: 20150330
  Transmission Date: 20150721
  Serious: Yes (Other)
  Sender: FDA-Public Use
  Company Number: US-BAYER-2015-003730

PATIENT
  Age: 31 Year
  Sex: Female
  Weight: 87.75 kg

DRUGS (1)
  1. MIRENA [Suspect]
     Active Substance: LEVONORGESTREL
     Indication: CONTRACEPTION
     Dosage: 20 MCG/24HR, CONT
     Route: 015
     Dates: start: 20130801, end: 20150105

REACTIONS (3)
  - Abdominal pain [None]
  - Uterine perforation [None]
  - Device difficult to use [None]

NARRATIVE: CASE EVENT DATE: 201501
